FAERS Safety Report 5731062-7 (Version None)
Quarter: 2008Q2

REPORT INFORMATION
  Report Type: 
  Country: None (occurrence: None)
  Receive Date: 20080507
  Receipt Date: 20080425
  Transmission Date: 20081010
  Serious: Yes (Death)
  Sender: FDA-Public Use
  Company Number: NL-MERCK-0804NLD00031

PATIENT
  Age: 70 Year
  Sex: Male

DRUGS (2)
  1. JANUVIA [Suspect]
     Route: 048
  2. METFORMIN [Concomitant]
     Route: 065

REACTIONS (2)
  - DEATH [None]
  - FLATULENCE [None]
